FAERS Safety Report 20478756 (Version 1)
Quarter: 2022Q1

REPORT INFORMATION
  Report Type: Spontaneous
  Country: US (occurrence: None)
  Receive Date: 20220215
  Receipt Date: 20220215
  Transmission Date: 20220423
  Serious: Yes (Hospitalization)
  Sender: FDA-Public Use
  Company Number: None

PATIENT
  Age: 84 Year
  Sex: Male

DRUGS (3)
  1. ABIRATERONE ACETATE [Suspect]
     Active Substance: ABIRATERONE ACETATE
     Indication: Prostate cancer
     Dosage: TAKE 4 TABLETS BY MOUTH EVERY DAY?
     Route: 048
     Dates: start: 20220203
  2. PREDNISONE [Concomitant]
     Active Substance: PREDNISONE
  3. XTANDI [Concomitant]
     Active Substance: ENZALUTAMIDE

REACTIONS (1)
  - Appendicitis perforated [None]

NARRATIVE: CASE EVENT DATE: 20220210
